FAERS Safety Report 7826123-2 (Version None)
Quarter: 2011Q4

REPORT INFORMATION
  Report Type: 
  Country: None (occurrence: None)
  Receive Date: 20111019
  Receipt Date: 20111013
  Transmission Date: 20120403
  Serious: Yes (Death)
  Sender: FDA-Public Use
  Company Number: US-CELGENEUS-163-21880-11101585

PATIENT
  Sex: Male

DRUGS (20)
  1. STOOL SOFTENER [Concomitant]
     Route: 065
  2. REVLIMID [Suspect]
     Indication: MULTIPLE MYELOMA
     Dosage: 25 MILLIGRAM
     Route: 048
     Dates: start: 20110916, end: 20110101
  3. CLARITIN [Concomitant]
     Route: 065
  4. TRIAMTERENE AND HYDROCHLOROTHIAZIDE [Concomitant]
     Route: 065
  5. OXYCODONE HCL [Concomitant]
     Route: 065
  6. ISOSORBIDE DINITRATE [Concomitant]
     Route: 065
  7. TYLENOL-500 [Concomitant]
     Route: 065
  8. SIMVASTATIN [Concomitant]
     Route: 065
  9. OXYBUTYNIN [Concomitant]
     Route: 065
  10. GLIPIZIDE [Concomitant]
     Route: 065
  11. FISH OIL [Concomitant]
     Route: 065
  12. ASPIRIN [Concomitant]
     Route: 065
  13. ACTOS [Concomitant]
     Route: 065
  14. VITAMIN B-12 [Concomitant]
     Route: 065
  15. PLAVIX [Concomitant]
     Route: 065
  16. ZOMETA [Concomitant]
     Route: 065
  17. ROPINIROLE [Concomitant]
     Route: 065
  18. CARVEDILOL [Concomitant]
     Route: 065
  19. LANTUS [Concomitant]
     Route: 065
  20. AMLODIPINE [Concomitant]
     Route: 065

REACTIONS (1)
  - DEATH [None]
